FAERS Safety Report 21506412 (Version 4)
Quarter: 2024Q4

REPORT INFORMATION
  Report Type: Report from Study
  Country: US (occurrence: US)
  Receive Date: 20221026
  Receipt Date: 20241112
  Transmission Date: 20250115
  Serious: No
  Sender: GLAXOSMITHKLINE
  Company Number: US-GLAXOSMITHKLINE-US2022AMR153841

PATIENT
  Sex: Female
  Weight: 74.376 kg

DRUGS (4)
  1. NIRAPARIB [Suspect]
     Active Substance: NIRAPARIB
     Indication: Ovarian cancer
     Dosage: 300 MG, QD
     Dates: start: 20220930
  2. NIRAPARIB [Suspect]
     Active Substance: NIRAPARIB
     Dosage: 200 MG, QD
  3. NIRAPARIB [Suspect]
     Active Substance: NIRAPARIB
     Indication: Ovarian cancer
     Dosage: 300 MG, QD, 3 PILLS
  4. NIRAPARIB [Suspect]
     Active Substance: NIRAPARIB
     Dosage: 150 MG, QD
     Dates: end: 202406

REACTIONS (7)
  - Heart rate increased [Unknown]
  - Hot flush [Unknown]
  - Nasopharyngitis [Unknown]
  - Headache [Unknown]
  - Paranasal sinus discomfort [Unknown]
  - Palpitations [Unknown]
  - Liver disorder [Unknown]
